FAERS Safety Report 8613062-2 (Version None)
Quarter: 2012Q3

REPORT INFORMATION
  Report Type: 
  Country: None (occurrence: None)
  Receive Date: 20120822
  Receipt Date: 20120820
  Transmission Date: 20120928
  Serious: No
  Sender: FDA-Public Use
  Company Number: US-PFIZER INC-2012112598

PATIENT
  Age: 53 Year
  Sex: Female
  Weight: 57 kg

DRUGS (5)
  1. FLEXERIL [Concomitant]
     Indication: MUSCLE SPASMS
     Dosage: UNK
  2. NEURONTIN [Suspect]
     Indication: SPINAL OSTEOARTHRITIS
  3. NEURONTIN [Suspect]
     Indication: HYPOAESTHESIA
  4. NEURONTIN [Suspect]
     Indication: BURNING SENSATION
     Dosage: 100 MG, 3X/DAY
     Route: 048
     Dates: start: 20120401
  5. CITALOPRAM [Concomitant]
     Indication: DEPRESSION
     Dosage: UNK

REACTIONS (2)
  - SOMNOLENCE [None]
  - FEELING ABNORMAL [None]
